FAERS Safety Report 8131166-8 (Version None)
Quarter: 2012Q1

REPORT INFORMATION
  Report Type: 
  Country: None (occurrence: None)
  Receive Date: 20120213
  Receipt Date: 20120131
  Transmission Date: 20120608
  Serious: Yes (Hospitalization)
  Sender: FDA-Public Use
  Company Number: US-JNJFOC-20110611998

PATIENT
  Sex: Male
  Weight: 43 kg

DRUGS (4)
  1. REMICADE [Suspect]
     Indication: CROHN'S DISEASE
     Route: 042
     Dates: start: 20091215
  2. REMICADE [Suspect]
     Dosage: DOSES ON UNSPECIFIED DATES
     Route: 042
  3. REMICADE [Suspect]
     Dosage: DOSE ALSO REPORTED AS 400 MG
     Route: 042
  4. REMICADE [Suspect]
     Route: 042
     Dates: start: 20110505

REACTIONS (2)
  - CROHN'S DISEASE [None]
  - ARTHRALGIA [None]
